FAERS Safety Report 7232502-7 (Version None)
Quarter: 2011Q1

REPORT INFORMATION
  Report Type: 
  Country: None (occurrence: None)
  Receive Date: 20110105
  Receipt Date: 20101220
  Transmission Date: 20110831
  Serious: Yes (Hospitalization)
  Sender: FDA-Public Use
  Company Number: 2007002056

PATIENT
  Age: 47 Year
  Sex: Male
  Weight: 38.1 kg

DRUGS (7)
  1. PLACEBO (PLACEBO) (INJECTION FOR INFUSION) [Suspect]
  2. OXYCODONE HCL [Concomitant]
  3. ERLOTINIB (TABLET) [Suspect]
     Indication: NON-SMALL CELL LUNG CANCER
     Dosage: 150 MG, QD), ORAL
     Route: 048
     Dates: start: 20070730
  4. PLACEBO (PLACEBO) (INJECTON FOR FUSION) [Suspect]
     Indication: NON-SMALL CELL LUNG CANCER
     Dosage: 675 MG, Q3W, INTRAVENOUS
     Route: 042
     Dates: start: 20070730, end: 20070820
  5. WARFARIN SODIUM [Concomitant]
  6. ALPRAZOLAM [Concomitant]
  7. ENOXAPARIN SODIUM [Concomitant]

REACTIONS (5)
  - PROTHROMBIN TIME PROLONGED [None]
  - INTERNATIONAL NORMALISED RATIO INCREASED [None]
  - RECTAL HAEMORRHAGE [None]
  - ACTIVATED PARTIAL THROMBOPLASTIN TIME PROLONGED [None]
  - DEEP VEIN THROMBOSIS [None]
